FAERS Safety Report 7853046-5 (Version None)
Quarter: 2011Q3

REPORT INFORMATION
  Report Type: 
  Country: None (occurrence: None)
  Receive Date: 20110914
  Receipt Date: 20100803
  Transmission Date: 20111222
  Serious: Yes (Other)
  Sender: FDA-Public Use
  Company Number: 1000015155

PATIENT
  Age: 46 Year
  Sex: Female
  Weight: 58 kg

DRUGS (17)
  1. EFFEXOR [Suspect]
  2. REBIF [Suspect]
  3. NEURONTIN [Concomitant]
  4. KLONOPIN [Concomitant]
  5. WELLBUTRIN XL [Concomitant]
  6. ZOLOFT [Suspect]
     Indication: DEPRESSION
     Dosage: 50 MG (50 MG,1 IN 1 D),ORAL
     Route: 048
     Dates: start: 19970101, end: 19970101
  7. ZOLOFT [Suspect]
     Indication: MENOPAUSAL SYMPTOMS
     Dosage: 50 MG (50 MG,1 IN 1 D),ORAL
     Route: 048
     Dates: start: 19970101, end: 19970101
  8. LIPITOR [Concomitant]
  9. ZOLOFT [Suspect]
     Indication: DEPRESSION
     Dosage: 100 MG (100 MG,1 IN 1 D),ORAL
     Route: 048
     Dates: start: 19970101, end: 19970101
  10. CYMBALTA [Suspect]
  11. PERCOCET [Concomitant]
  12. PROVIGIL [Concomitant]
  13. ZOLOFT [Suspect]
     Indication: MENOPAUSAL SYMPTOMS
     Dosage: 100 MG (50 MG,2 IN 1 D),ORAL
     Route: 048
     Dates: start: 19920101, end: 19920101
  14. ZOLOFT [Suspect]
     Indication: DEPRESSION
     Dosage: 100 MG (50 MG,2 IN 1 D),ORAL
     Route: 048
     Dates: start: 19920101, end: 19920101
  15. SINGULAIR [Suspect]
  16. ZESTRIL [Concomitant]
  17. CELEXA [Suspect]
     Indication: DEPRESSION

REACTIONS (12)
  - PRURITUS [None]
  - NAUSEA [None]
  - HYPOKINESIA [None]
  - PAIN [None]
  - HYPERTENSION [None]
  - MUSCLE SPASMS [None]
  - MUSCULOSKELETAL DISCOMFORT [None]
  - HYPERHIDROSIS [None]
  - HYPERSENSITIVITY [None]
  - PALPITATIONS [None]
  - DEPRESSED MOOD [None]
  - DRUG HYPERSENSITIVITY [None]
